FAERS Safety Report 8811603 (Version 1)
Quarter: 2012Q4

REPORT INFORMATION
  Report Type: 
  Country: US (occurrence: None)
  Receive Date: 20120925
  Receipt Date: 20120925
  Transmission Date: 20130627
  Serious: Yes (Hospitalization)
  Sender: FDA-Public Use
  Company Number: None

PATIENT
  Sex: Female
  Weight: 120.91 kg

DRUGS (2)
  1. PACLITAXEL (TAXOL) [Suspect]
     Dosage: CARBOplatin 596 mg
  2. CARBOPLATIN [Suspect]

REACTIONS (9)
  - Vaginal haemorrhage [None]
  - Vaginal discharge [None]
  - Hypotension [None]
  - Disturbance in attention [None]
  - Blood creatinine increased [None]
  - White blood cell count decreased [None]
  - Neutrophil count decreased [None]
  - Haemoglobin decreased [None]
  - Platelet count decreased [None]
